FAERS Safety Report 25590239 (Version 1)
Quarter: 2025Q3

REPORT INFORMATION
  Report Type: Spontaneous
  Country: US (occurrence: None)
  Receive Date: 20250721
  Receipt Date: 20250721
  Transmission Date: 20251020
  Serious: Yes (unspecified)
  Sender: FDA-CTU
  Company Number: None

PATIENT
  Age: 43 Year
  Sex: Male

DRUGS (1)
  1. GAMMAGARD LIQUID [Suspect]
     Active Substance: HUMAN IMMUNOGLOBULIN G
     Route: 041

REACTIONS (6)
  - Infusion related reaction [None]
  - Muscle spasms [None]
  - Dyspnoea [None]
  - Chest discomfort [None]
  - Wheezing [None]
  - Therapy interrupted [None]

NARRATIVE: CASE EVENT DATE: 20250630
